FAERS Safety Report 16458890 (Version 1)
Quarter: 2019Q2

REPORT INFORMATION
  Report Type: Spontaneous
  Country: US (occurrence: US)
  Receive Date: 20190620
  Receipt Date: 20190620
  Transmission Date: 20190711
  Serious: No
  Sender: FDA-Public Use
  Company Number: US-THERAPEUTICSMD-2019TMD00948

PATIENT
  Sex: Female
  Weight: 68.93 kg

DRUGS (3)
  1. IMVEXXY [Suspect]
     Active Substance: ESTRADIOL
     Dosage: 10 ?G, 2X/WEEK FIRST AT NIGHTTIME THEN SWITCHED TO THE DAY
     Route: 067
     Dates: start: 2019, end: 20190509
  2. UNSPECIFIED HIGH BLOOD PRESSURE MEDICATION [Concomitant]
     Active Substance: UNSPECIFIED INGREDIENT
  3. IMVEXXY [Suspect]
     Active Substance: ESTRADIOL
     Indication: VAGINAL OPERATION
     Dosage: 10 ?G, 1X/DAY FIRST AT NIGHTTIME THEN SWITCHED TO THE DAY
     Route: 067
     Dates: start: 201902, end: 2019

REACTIONS (11)
  - Headache [Not Recovered/Not Resolved]
  - Aphonia [Recovered/Resolved]
  - Joint stiffness [Not Recovered/Not Resolved]
  - Dysphonia [Not Recovered/Not Resolved]
  - Arthralgia [Not Recovered/Not Resolved]
  - Initial insomnia [Unknown]
  - Myalgia [Not Recovered/Not Resolved]
  - Dizziness [Not Recovered/Not Resolved]
  - Off label use [Recovered/Resolved]
  - Heart rate increased [Not Recovered/Not Resolved]
  - Vulvovaginal pruritus [Unknown]

NARRATIVE: CASE EVENT DATE: 2019
